FAERS Safety Report 6240988-X (Version None)
Quarter: 2009Q2

REPORT INFORMATION
  Report Type: 
  Country: None (occurrence: None)
  Receive Date: 20090623
  Receipt Date: 20090616
  Transmission Date: 20091009
  Serious: Yes (Other)
  Sender: FDA-Public Use
  Company Number: A0792962A

PATIENT
  Sex: Female
  Weight: 76 kg

DRUGS (6)
  1. AVAMYS [Suspect]
     Indication: BRONCHITIS
     Dosage: 2PUFF PER DAY
     Dates: start: 20090423, end: 20090615
  2. SERETIDE [Concomitant]
     Dosage: 1PUFF TWICE PER DAY
     Dates: start: 20090423
  3. SEROQUEL [Concomitant]
     Dosage: .5TAB TWICE PER DAY
     Dates: start: 20090420
  4. SPIRONOLACTONE [Concomitant]
     Dosage: 1TAB AT NIGHT
     Dates: start: 20090420
  5. AMLODIPINE [Concomitant]
     Dosage: 2TAB PER DAY
  6. VENALOT [Concomitant]
     Dosage: 1TAB PER DAY

REACTIONS (3)
  - ASPHYXIA [None]
  - DRUG ADMINISTRATION ERROR [None]
  - PRODUCT QUALITY ISSUE [None]
